FAERS Safety Report 8616404-7 (Version None)
Quarter: 2012Q3

REPORT INFORMATION
  Report Type: 
  Country: None (occurrence: None)
  Receive Date: 20120823
  Receipt Date: 20120810
  Transmission Date: 20120928
  Serious: Yes (Other)
  Sender: FDA-Public Use
  Company Number: CN-JNJFOC-20120501473

PATIENT
  Sex: Female
  Weight: 68 kg

DRUGS (3)
  1. MICONAZOLE NITRATE [Suspect]
     Indication: VULVOVAGINITIS
     Dosage: 1 GRANULATION, INTERVAL 1
     Route: 067
     Dates: start: 20110109, end: 20110110
  2. MICONAZOLE NITRATE [Suspect]
     Indication: VAGINAL INFECTION
     Dosage: 1 GRANULATION, INTERVAL 1
     Route: 067
     Dates: start: 20110109, end: 20110110
  3. MICONAZOLE NITRATE [Suspect]
     Dosage: 1 GRANULATION, INTERVAL 1
     Route: 067
     Dates: start: 20110109, end: 20110110

REACTIONS (2)
  - VULVOVAGINAL SWELLING [None]
  - VULVOVAGINAL ERYTHEMA [None]
